FAERS Safety Report 20630342 (Version 1)
Quarter: 2022Q1

REPORT INFORMATION
  Report Type: Spontaneous
  Country: DE (occurrence: DE)
  Receive Date: 20220324
  Receipt Date: 20220324
  Transmission Date: 20220423
  Serious: Yes (Hospitalization)
  Sender: FDA-Public Use
  Company Number: DE-DCGMA-22196834

PATIENT
  Age: 69 Year
  Sex: Male
  Weight: 95 kg

DRUGS (4)
  1. FLUDARABINE [Suspect]
     Active Substance: FLUDARABINE PHOSPHATE
     Indication: Stem cell transplant
     Dosage: 28 MG- 57 MG
     Route: 042
     Dates: start: 20220108, end: 20220112
  2. THYMOCYTE IMMUNE GLOBULIN NOS [Suspect]
     Active Substance: THYMOCYTE IMMUNE GLOBULIN NOS
     Indication: Stem cell transplant
     Dosage: UNIT DOSE 771MG
     Route: 042
     Dates: start: 20220110, end: 20220113
  3. TREOSULFAN [Suspect]
     Active Substance: TREOSULFAN
     Indication: Stem cell transplant
     Dosage: UNIT DOSE 20.3G
     Route: 042
     Dates: start: 20220110, end: 20220112
  4. METHYLPREDNISOLONE [Concomitant]
     Active Substance: METHYLPREDNISOLONE
     Indication: Stem cell transplant
     Dosage: UNIT DOSE 200MG
     Route: 042
     Dates: start: 20220110, end: 20220113

REACTIONS (1)
  - Cerebral infarction [Not Recovered/Not Resolved]

NARRATIVE: CASE EVENT DATE: 20220111
